FAERS Safety Report 4868728-7 (Version None)
Quarter: 2005Q4

REPORT INFORMATION
  Report Type: 
  Country: None (occurrence: None)
  Receive Date: 20051223
  Receipt Date: 20051215
  Transmission Date: 20060501
  Serious: Yes (Other)
  Sender: FDA-Public Use
  Company Number: 2005170003

PATIENT
  Age: 23 Year
  Sex: Male

DRUGS (4)
  1. ZOLOFT [Suspect]
     Indication: DEPRESSED MOOD
     Dosage: 50 MG (50 MG, 1 IN 1 D), ORAL
     Route: 048
     Dates: start: 20051208, end: 20051211
  2. ZOLOFT [Suspect]
     Indication: INSOMNIA
     Dosage: 50 MG (50 MG, 1 IN 1 D), ORAL
     Route: 048
     Dates: start: 20051208, end: 20051211
  3. DIAZEPAM [Suspect]
     Indication: DEPRESSED MOOD
     Dosage: ORAL
     Route: 048
     Dates: start: 20051208, end: 20051210
  4. DIAZEPAM [Suspect]
     Indication: INSOMNIA
     Dosage: ORAL
     Route: 048
     Dates: start: 20051208, end: 20051210

REACTIONS (5)
  - DIZZINESS [None]
  - HYPERHIDROSIS [None]
  - LOSS OF CONSCIOUSNESS [None]
  - PERIPHERAL COLDNESS [None]
  - RESTLESSNESS [None]
